FAERS Safety Report 9922701 (Version 1)
Quarter: 2014Q1

REPORT INFORMATION
  Report Type: Spontaneous
  Country: US (occurrence: US)
  Receive Date: 20140225
  Receipt Date: 20140225
  Transmission Date: 20141002
  Serious: No
  Sender: FDA-Public Use
  Company Number: US-MYLANLABS-2013S1028707

PATIENT
  Sex: Female

DRUGS (1)
  1. METOPROLOL TARTRATE TABLETS, USP [Suspect]
     Indication: CHEST PAIN
     Route: 048
     Dates: start: 20131216

REACTIONS (6)
  - Drug effect decreased [Not Recovered/Not Resolved]
  - Chest pain [Not Recovered/Not Resolved]
  - Reaction to drug excipients [Not Recovered/Not Resolved]
  - Dermatitis [Not Recovered/Not Resolved]
  - Diarrhoea [Not Recovered/Not Resolved]
  - Headache [Not Recovered/Not Resolved]
